FAERS Safety Report 4974830-1 (Version None)
Quarter: 2006Q1

REPORT INFORMATION
  Report Type: 
  Country: None (occurrence: None)
  Receive Date: 20060216
  Receipt Date: 20050606
  Transmission Date: 20060701
  Serious: Yes (Hospitalization)
  Sender: FDA-Public Use
  Company Number: 200506IM000221

PATIENT
  Age: 59 Year
  Sex: Female
  Weight: 70.7611 kg

DRUGS (14)
  1. INTERFERON GAMMA-1B [Suspect]
     Indication: OVARIAN CANCER
     Dosage: 100 UG/ML, TIW, SUBCUTANEOUS
     Route: 058
     Dates: start: 20031027, end: 20031110
  2. CARBOPLATIN [Suspect]
     Indication: OVARIAN CANCER
     Dosage: 650 MG, Q3W, INTRAVENOUS
     Route: 042
     Dates: start: 20031027, end: 20031027
  3. PACLITAXEL [Suspect]
     Indication: OVARIAN CANCER
     Dosage: 298 MG, Q3W, INTRAVENOUS
     Route: 042
     Dates: start: 20031027, end: 20031027
  4. MILK OF MAGNESIA TAB [Concomitant]
  5. PERCOCET [Concomitant]
  6. DICYCLOMINE [Concomitant]
  7. HYDROXYCHLOROQUINE SULFATE [Concomitant]
  8. TIZANIDINE HCL [Concomitant]
  9. ULTRACET [Concomitant]
  10. FLAXSEED OIL [Concomitant]
  11. ATIVAN [Concomitant]
  12. MULTIVITAMIN [Concomitant]
  13. REGLAN [Concomitant]
  14. PHENERGAN HCL [Concomitant]

REACTIONS (1)
  - FEBRILE NEUTROPENIA [None]
